FAERS Safety Report 16941298 (Version 1)
Quarter: 2019Q4

REPORT INFORMATION
  Report Type: Spontaneous
  Country: US (occurrence: US)
  Receive Date: 20191021
  Receipt Date: 20191021
  Transmission Date: 20200122
  Serious: No
  Sender: FDA-Public Use
  Company Number: US-JNJFOC-20191026969

PATIENT

DRUGS (1)
  1. REMICADE [Suspect]
     Active Substance: INFLIXIMAB
     Indication: PRODUCT USED FOR UNKNOWN INDICATION
     Route: 042
     Dates: start: 2019

REACTIONS (4)
  - Flushing [Unknown]
  - Arthralgia [Unknown]
  - Infusion related reaction [Unknown]
  - Chest pain [Unknown]

NARRATIVE: CASE EVENT DATE: 201910
